FAERS Safety Report 8524817-7 (Version None)
Quarter: 2012Q3

REPORT INFORMATION
  Report Type: 
  Country: None (occurrence: None)
  Receive Date: 20120720
  Receipt Date: 20120712
  Transmission Date: 20120928
  Serious: Yes (Hospitalization)
  Sender: FDA-Public Use
  Company Number: AU-GLAXOSMITHKLINE-B0812784A

PATIENT
  Sex: Male
  Weight: 77 kg

DRUGS (16)
  1. DURIDE [Concomitant]
     Indication: MYOCARDIAL ISCHAEMIA
     Dosage: 30MG PER DAY
     Route: 048
     Dates: start: 20100101
  2. ENDEP [Concomitant]
     Indication: INSOMNIA
     Route: 048
     Dates: start: 20090101
  3. VERACAPS SR [Concomitant]
     Indication: MYOCARDIAL ISCHAEMIA
     Dosage: 160MG PER DAY
     Route: 048
     Dates: start: 20100901
  4. PERHEXILINE MALEATE [Concomitant]
     Indication: MYOCARDIAL ISCHAEMIA
     Dosage: 100MG TWICE PER DAY
     Route: 048
     Dates: start: 20100901
  5. HYDROMORPHONE HCL [Concomitant]
     Indication: PAIN IN EXTREMITY
     Dosage: 16MG PER DAY
     Route: 048
     Dates: start: 20100101
  6. NITROGLYCERIN [Concomitant]
     Indication: ANGINA PECTORIS
     Route: 060
     Dates: start: 20100901
  7. CORALAN [Concomitant]
     Indication: MYOCARDIAL ISCHAEMIA
     Dosage: 5MG PER DAY
     Route: 048
     Dates: start: 20110201
  8. ACETAMINOPHEN [Concomitant]
     Indication: PAIN IN EXTREMITY
  9. AZELASTINE HYDROCHLORIDE [Concomitant]
     Indication: CONJUNCTIVITIS ALLERGIC
     Route: 047
     Dates: start: 20070101
  10. HYDROMORPHONE HCL [Concomitant]
     Indication: GROIN PAIN
  11. FLUTICASONE FUROATE [Suspect]
     Indication: CHRONIC OBSTRUCTIVE PULMONARY DISEASE
     Dosage: 100MCG PER DAY
     Route: 055
  12. ATROVENT [Concomitant]
     Indication: CHRONIC OBSTRUCTIVE PULMONARY DISEASE
     Route: 055
     Dates: start: 20120516
  13. CRESTOR [Concomitant]
     Indication: MYOCARDIAL ISCHAEMIA
     Dosage: 20MG PER DAY
     Route: 048
     Dates: start: 20100901
  14. ACETAMINOPHEN [Concomitant]
     Indication: GROIN PAIN
     Route: 048
     Dates: start: 20100101
  15. COPLAVIX [Concomitant]
     Indication: MYOCARDIAL ISCHAEMIA
     Route: 048
     Dates: start: 20100901
  16. VENTOLIN [Concomitant]
     Indication: CHRONIC OBSTRUCTIVE PULMONARY DISEASE
     Route: 055
     Dates: start: 20000101

REACTIONS (1)
  - CHRONIC OBSTRUCTIVE PULMONARY DISEASE [None]
